FAERS Safety Report 17136282 (Version 1)
Quarter: 2019Q4

REPORT INFORMATION
  Report Type: Spontaneous
  Country: US (occurrence: US)
  Receive Date: 20191210
  Receipt Date: 20191210
  Transmission Date: 20200122
  Serious: Yes (Hospitalization)
  Sender: FDA-Public Use
  Company Number: US-ASTRAZENECA-2019SF74500

PATIENT
  Age: 86 Week
  Sex: Male

DRUGS (6)
  1. SYNAGIS [Suspect]
     Active Substance: PALIVIZUMAB
     Indication: PREMATURE BABY
     Route: 030
  2. SYNAGIS [Suspect]
     Active Substance: PALIVIZUMAB
     Indication: RETINOPATHY OF PREMATURITY
     Route: 030
  3. SYNAGIS [Suspect]
     Active Substance: PALIVIZUMAB
     Indication: ASTHMA
     Route: 030
     Dates: start: 20191023
  4. SYNAGIS [Suspect]
     Active Substance: PALIVIZUMAB
     Indication: RETINOPATHY OF PREMATURITY
     Route: 030
     Dates: start: 20191023
  5. SYNAGIS [Suspect]
     Active Substance: PALIVIZUMAB
     Indication: ASTHMA
     Route: 030
  6. SYNAGIS [Suspect]
     Active Substance: PALIVIZUMAB
     Indication: PREMATURE BABY
     Route: 030
     Dates: start: 20191023

REACTIONS (1)
  - Respiratory syncytial virus infection [Unknown]

NARRATIVE: CASE EVENT DATE: 20191202
